FAERS Safety Report 8048597-7 (Version None)
Quarter: 2012Q1

REPORT INFORMATION
  Report Type: 
  Country: None (occurrence: None)
  Receive Date: 20120117
  Receipt Date: 20120111
  Transmission Date: 20120608
  Serious: Yes (Other)
  Sender: FDA-Public Use
  Company Number: FR-PFIZER INC-2012008866

PATIENT
  Age: 70 Year
  Sex: Male

DRUGS (2)
  1. ATORVASTATIN CALCIUM [Suspect]
     Dosage: 40 MG, UNK
     Dates: start: 20100101
  2. EZETIMIBE [Suspect]
     Dosage: UNK

REACTIONS (2)
  - AMNESIA [None]
  - BRAIN INJURY [None]
